FAERS Safety Report 9706928 (Version 4)
Quarter: 2014Q1

REPORT INFORMATION
  Report Type: Spontaneous
  Country: US (occurrence: US)
  Receive Date: 20131125
  Receipt Date: 20140313
  Transmission Date: 20141002
  Serious: No
  Sender: FDA-Public Use
  Company Number: US-PFIZER INC-2013332704

PATIENT
  Age: 74 Year
  Sex: Male
  Weight: 80.73 kg

DRUGS (10)
  1. SUTENT [Suspect]
     Indication: FIBROMA
     Dosage: 50 MG, DAILY (TAKE 4 CAPSULES (50 MG TOTAL) BY MOUTH DAILY)
     Route: 048
     Dates: start: 201310, end: 20131111
  2. SUTENT [Suspect]
     Dosage: 37.5 MG, DAILY (12.5 MG CAPSULE; TAKE 3 CAPSULES BY MOUTH DAILY)
     Route: 048
     Dates: start: 20131123
  3. LOPRESSOR [Concomitant]
     Dosage: 100 MG, 1X/DAY
     Route: 048
  4. LOPRESSOR [Concomitant]
     Dosage: 100 MG, 2X/DAY
  5. ASPIRIN [Concomitant]
     Dosage: 81 MG, DAILY
     Route: 048
  6. VITAMIN D [Concomitant]
     Dosage: 2000 IU, DAILY
     Route: 048
  7. SYNTHROID [Concomitant]
     Dosage: 50 UG, DAILY
     Route: 048
  8. LEVOTHROID [Concomitant]
     Dosage: 50 UG, DAILY
     Route: 048
  9. ZESTORETIC [Concomitant]
     Dosage: UNK (20-12.5 MG PER TABLET; TAKE 2 TABLETS BY MOUTH EVERY MORNING)
     Route: 048
  10. CALCIUM CARBONATE-VITAMIN D [Concomitant]
     Dosage: 2 UNK (600- 400 MG-UNIT PER TABLET; TAKE 2 TABLETS BY MOUTH DAILY)
     Route: 048

REACTIONS (10)
  - Liver function test abnormal [Recovered/Resolved]
  - Disease progression [Unknown]
  - Fibroma [Unknown]
  - Off label use [Unknown]
  - Fatigue [Recovering/Resolving]
  - Chills [Recovering/Resolving]
  - Hyperhidrosis [Recovering/Resolving]
  - Decreased appetite [Recovering/Resolving]
  - Weight decreased [Recovering/Resolving]
  - Hypertension [Recovering/Resolving]
